FAERS Safety Report 9612362 (Version 5)
Quarter: 2014Q1

REPORT INFORMATION
  Report Type: Report from Study
  Country: US (occurrence: US)
  Receive Date: 20131010
  Receipt Date: 20140313
  Transmission Date: 20141002
  Serious: Yes (Other)
  Sender: FDA-Public Use
  Company Number: US-SANOFI-AVENTIS-2013SA076868

PATIENT
  Age: 50 Year
  Sex: Female

DRUGS (23)
  1. AUBAGIO [Suspect]
     Indication: MULTIPLE SCLEROSIS
     Dosage: PRODUCT START DATE- SIX-SEVEN WEEKS AGO
     Route: 048
     Dates: start: 20130528, end: 20140226
  2. AUBAGIO [Suspect]
     Indication: MULTIPLE SCLEROSIS
     Dosage: PRODUCT START DATE- SIX-SEVEN WEEKS AGO
     Route: 048
     Dates: start: 20130528, end: 20140226
  3. ARIXTRA [Concomitant]
     Indication: COAGULOPATHY
  4. XANAX [Concomitant]
  5. DETROL [Concomitant]
  6. NEURONTIN [Concomitant]
  7. LYRICA [Concomitant]
  8. CARISOPRODOL [Concomitant]
  9. BACLOFEN [Concomitant]
  10. MORPHINE [Concomitant]
  11. SULFUR [Concomitant]
  12. SPIRIVA [Concomitant]
  13. VITAMIN D3 [Concomitant]
  14. POTASSIUM [Concomitant]
  15. CYMBALTA [Concomitant]
  16. CELEBREX [Concomitant]
  17. DEPAKOTE [Concomitant]
  18. DILTIAZEM [Concomitant]
  19. PROCHLORPERAZINE [Concomitant]
  20. TRAZODONE [Concomitant]
  21. NEXIUM [Concomitant]
  22. VITAMIN D [Concomitant]
  23. OXYCODONE [Concomitant]

REACTIONS (28)
  - Pneumonia [Unknown]
  - Spinal disorder [Not Recovered/Not Resolved]
  - Incision site infection [Not Recovered/Not Resolved]
  - Chest pain [Unknown]
  - Anxiety [Unknown]
  - Feeling abnormal [Not Recovered/Not Resolved]
  - Limb discomfort [Not Recovered/Not Resolved]
  - Gait disturbance [Not Recovered/Not Resolved]
  - Cardiac disorder [Not Recovered/Not Resolved]
  - Fall [Not Recovered/Not Resolved]
  - Excoriation [Not Recovered/Not Resolved]
  - Skin discolouration [Not Recovered/Not Resolved]
  - Confusional state [Unknown]
  - Feeling abnormal [Not Recovered/Not Resolved]
  - Somnolence [Not Recovered/Not Resolved]
  - Memory impairment [Not Recovered/Not Resolved]
  - Lymphoedema [Not Recovered/Not Resolved]
  - Local swelling [Not Recovered/Not Resolved]
  - Pain [Not Recovered/Not Resolved]
  - Stomatitis [Not Recovered/Not Resolved]
  - Dry mouth [Not Recovered/Not Resolved]
  - Tooth fracture [Not Recovered/Not Resolved]
  - Abdominal distension [Unknown]
  - Cough [Not Recovered/Not Resolved]
  - Oropharyngeal pain [Not Recovered/Not Resolved]
  - Alopecia [Not Recovered/Not Resolved]
  - Fatigue [Not Recovered/Not Resolved]
  - Mass [Unknown]
